FAERS Safety Report 15593649 (Version 1)
Quarter: 2018Q4

REPORT INFORMATION
  Report Type: Other
  Country: DE (occurrence: DE)
  Receive Date: 20181107
  Receipt Date: 20181107
  Transmission Date: 20190205
  Serious: Yes (Other)
  Sender: FDA-Public Use
  Company Number: DE-CELLTRION INC.-2018DE023498

PATIENT

DRUGS (2)
  1. REMSIMA [Suspect]
     Active Substance: INFLIXIMAB
     Indication: CROHN^S DISEASE
     Dosage: 75 MG EVERY 8 WEEKS
     Route: 042
     Dates: start: 201702, end: 201702
  2. REMSIMA [Suspect]
     Active Substance: INFLIXIMAB
     Dosage: 75 MG EVERY 8 WEEKS
     Route: 042
     Dates: start: 201809, end: 201809

REACTIONS (6)
  - Blood pressure decreased [Recovered/Resolved]
  - Cold sweat [Recovered/Resolved]
  - Flank pain [Recovered/Resolved]
  - Anaphylactoid reaction [Recovered/Resolved]
  - Underdose [Unknown]
  - Flushing [Recovered/Resolved]

NARRATIVE: CASE EVENT DATE: 20180927
